FAERS Safety Report 16246962 (Version 2)
Quarter: 2019Q3

REPORT INFORMATION
  Report Type: Spontaneous
  Country: US (occurrence: US)
  Receive Date: 20190427
  Receipt Date: 20190708
  Transmission Date: 20191004
  Serious: No
  Sender: FDA-Public Use
  Company Number: US-BIOGEN-2019BI00728561

PATIENT
  Sex: Female

DRUGS (1)
  1. TYSABRI [Suspect]
     Active Substance: NATALIZUMAB
     Indication: MULTIPLE SCLEROSIS
     Route: 042
     Dates: start: 20171113

REACTIONS (5)
  - Gastrointestinal disorder [Unknown]
  - Migraine with aura [Recovered/Resolved]
  - Pain [Recovered/Resolved]
  - Multiple sclerosis [Unknown]
  - Road traffic accident [Recovered/Resolved]
